FAERS Safety Report 25222956 (Version 1)
Quarter: 2025Q2

REPORT INFORMATION
  Report Type: Spontaneous
  Country: IN (occurrence: IN)
  Receive Date: 20250422
  Receipt Date: 20250422
  Transmission Date: 20250716
  Serious: Yes (Life-Threatening, Other)
  Sender: CIPLA
  Company Number: IN-MLMSERVICE-20250403-PI468382-00140-2

PATIENT

DRUGS (6)
  1. CARBOPLATIN [Suspect]
     Active Substance: CARBOPLATIN
     Indication: Neuroendocrine carcinoma of the oesophagus
     Dosage: 500 MILLIGRAM, QD ((AREA UNDER CURVE FIVE) ON DAY ONE, EVERY 21 DAYS FOR FOUR CYCLES)
     Route: 065
  2. CARBOPLATIN [Suspect]
     Active Substance: CARBOPLATIN
     Indication: Metastases to lymph nodes
  3. CARBOPLATIN [Suspect]
     Active Substance: CARBOPLATIN
     Indication: Metastases to liver
  4. ETOPOSIDE [Suspect]
     Active Substance: ETOPOSIDE
     Indication: Neuroendocrine carcinoma of the oesophagus
     Dosage: 120 MILLIGRAM, QD ((100 MG/M2) ON DAYS ONE, TWO, AND THREE EVERY 21 DAYS (FOUR CYCLES))
     Route: 065
  5. ETOPOSIDE [Suspect]
     Active Substance: ETOPOSIDE
     Indication: Metastases to lymph nodes
  6. ETOPOSIDE [Suspect]
     Active Substance: ETOPOSIDE
     Indication: Metastases to liver

REACTIONS (1)
  - Inappropriate antidiuretic hormone secretion [Recovered/Resolved]
